FAERS Safety Report 7387232-8 (Version None)
Quarter: 2011Q1

REPORT INFORMATION
  Report Type: 
  Country: None (occurrence: None)
  Receive Date: 20110331
  Receipt Date: 20110331
  Transmission Date: 20110831
  Serious: Yes (Other)
  Sender: FDA-Public Use
  Company Number: US-PFIZER INC-2011039672

PATIENT
  Sex: Male
  Weight: 68.027 kg

DRUGS (8)
  1. HUMIRA [Suspect]
     Indication: ANKYLOSING SPONDYLITIS
     Dosage: 40 MG, 1X IN 2 WEEKS
     Route: 058
     Dates: start: 20060101, end: 20101114
  2. AZITHROMYCIN [Suspect]
     Indication: SINUSITIS
     Dosage: 500 MG, UNK
     Dates: start: 20101129, end: 20101101
  3. AMOXICILLIN [Suspect]
     Indication: SINUSITIS
     Dosage: 500 MG, 2 TO 3X IN 1 DAY
     Dates: start: 20101101, end: 20101201
  4. MULTIVITAMIN [Concomitant]
     Dosage: UNK
  5. AMITRIPTYLINE [Concomitant]
     Dosage: UNK
  6. CELECOXIB [Concomitant]
     Indication: ANKYLOSING SPONDYLITIS
  7. BISELECT [Concomitant]
     Indication: BLOOD PRESSURE
     Dosage: IN AM
  8. LISINOPRIL [Concomitant]
     Indication: BLOOD PRESSURE
     Dosage: IN PM

REACTIONS (3)
  - GASTROINTESTINAL BACTERIAL INFECTION [None]
  - DRUG INEFFECTIVE [None]
  - BLOODY DISCHARGE [None]
